FAERS Safety Report 7913034-7 (Version None)
Quarter: 2011Q4

REPORT INFORMATION
  Report Type: 
  Country: None (occurrence: None)
  Receive Date: 20111114
  Receipt Date: 20111103
  Transmission Date: 20120403
  Serious: Yes (Hospitalization, Other)
  Sender: FDA-Public Use
  Company Number: US-US-EMD SERONO, INC.-230224M07USA

PATIENT
  Sex: Female
  Weight: 70 kg

DRUGS (5)
  1. DIPENTUM [Concomitant]
     Route: 065
  2. REBIF [Suspect]
     Route: 058
     Dates: start: 20060818, end: 20070804
  3. REBIF [Suspect]
     Route: 058
     Dates: start: 20070824
  4. NITROFURANTOIN [Concomitant]
     Indication: URINARY TRACT INFECTION
  5. REBIF [Suspect]
     Indication: MULTIPLE SCLEROSIS
     Route: 058
     Dates: start: 20060606, end: 20060818

REACTIONS (8)
  - BRADYPHRENIA [None]
  - SARCOMA UTERUS [None]
  - FATIGUE [None]
  - PYREXIA [None]
  - INFLUENZA LIKE ILLNESS [None]
  - INJECTION SITE HYPERSENSITIVITY [None]
  - FALL [None]
  - NAUSEA [None]
